FAERS Safety Report 6601889-8 (Version None)
Quarter: 2010Q1

REPORT INFORMATION
  Report Type: 
  Country: None (occurrence: None)
  Receive Date: 20100225
  Receipt Date: 20100215
  Transmission Date: 20100710
  Serious: Yes (Death)
  Sender: FDA-Public Use
  Company Number: US-JNJFOC-20100208213

PATIENT
  Age: 48 Year
  Sex: Male
  Weight: 121.93 kg

DRUGS (10)
  1. DURAGESIC-100 [Suspect]
     Indication: DRUG USE FOR UNKNOWN INDICATION
     Route: 062
  2. OPIATES [Concomitant]
     Route: 065
  3. BENZODIAZEPINE DERIVATIVES [Concomitant]
     Route: 065
  4. OXYCODONE HCL [Concomitant]
     Route: 065
  5. ZOLPIDEM [Concomitant]
     Route: 065
  6. HYDROXYZINE [Concomitant]
     Route: 065
  7. DIAZEPAM [Concomitant]
     Route: 065
  8. DOXEPIN HCL [Concomitant]
     Route: 065
  9. BACLOFEN [Concomitant]
     Route: 065
  10. ACETAMINOPHEN [Concomitant]
     Route: 065

REACTIONS (4)
  - CARDIAC FAILURE CONGESTIVE [None]
  - DIABETES MELLITUS [None]
  - DRUG ADMINISTERED AT INAPPROPRIATE SITE [None]
  - MESOTHELIOMA [None]
